FAERS Safety Report 5116680-1 (Version None)
Quarter: 2006Q3

REPORT INFORMATION
  Report Type: 
  Country: None (occurrence: None)
  Receive Date: 20060928
  Receipt Date: 20060918
  Transmission Date: 20061208
  Serious: Yes (Other)
  Sender: FDA-Public Use
  Company Number: US-AMGEN-US193925

PATIENT
  Sex: Female

DRUGS (11)
  1. KINERET [Suspect]
     Indication: RHEUMATOID ARTHRITIS
     Route: 058
     Dates: start: 20051201, end: 20060201
  2. ENBREL [Suspect]
     Indication: RHEUMATOID ARTHRITIS
     Route: 058
     Dates: start: 20060201, end: 20060601
  3. ATARAX [Concomitant]
  4. COMPAZINE [Concomitant]
  5. POTASSIUM CHLORIDE [Concomitant]
  6. LEVOXYL [Concomitant]
  7. FOSAMAX [Concomitant]
  8. ASPIRIN [Concomitant]
  9. CALCIUM GLUCONATE [Concomitant]
  10. KLONOPIN [Concomitant]
  11. ABATACEPT (BRISTOL-MYERS SQUIBB) [Concomitant]
     Route: 042
     Dates: start: 20060627, end: 20060819

REACTIONS (1)
  - COCCIDIOIDOMYCOSIS [None]
